FAERS Safety Report 4872858-3 (Version None)
Quarter: 2006Q1

REPORT INFORMATION
  Report Type: 
  Country: None (occurrence: None)
  Receive Date: 20060105
  Receipt Date: 19991110
  Transmission Date: 20060701
  Serious: Yes (Hospitalization)
  Sender: FDA-Public Use
  Company Number: AU-ABBOTT-99P-184-0008241-00

PATIENT
  Sex: Female

DRUGS (9)
  1. FENOFIBRATE [Suspect]
     Indication: DYSLIPIDAEMIA
     Route: 048
     Dates: start: 19990524, end: 19990903
  2. FENOFIBRATE [Suspect]
     Dates: start: 19990904
  3. FENOFIBRATE [Suspect]
     Dates: start: 19990904
  4. FENOFIBRATE [Suspect]
     Dates: start: 19990904
  5. MONOPRIL [Concomitant]
     Indication: DRUG USE FOR UNKNOWN INDICATION
     Route: 048
     Dates: start: 19900101
  6. MULTIVITAMIN [Concomitant]
     Indication: DRUG USE FOR UNKNOWN INDICATION
     Route: 048
     Dates: start: 19980101
  7. WARFARIN [Concomitant]
     Indication: DRUG USE FOR UNKNOWN INDICATION
     Route: 048
     Dates: start: 19900101
  8. COD-LIVER OIL [Concomitant]
     Indication: DRUG USE FOR UNKNOWN INDICATION
     Dates: start: 19990201
  9. NIZATIDINE [Concomitant]
     Indication: DRUG USE FOR UNKNOWN INDICATION
     Dates: start: 20011001

REACTIONS (6)
  - ANORECTAL DISORDER [None]
  - DUODENITIS [None]
  - DYSPLASIA [None]
  - NAUSEA [None]
  - RECTAL HAEMORRHAGE [None]
  - RECTAL POLYP [None]
